FAERS Safety Report 4928815-1 (Version None)
Quarter: 2006Q1

REPORT INFORMATION
  Report Type: 
  Country: None (occurrence: None)
  Receive Date: 20060301
  Receipt Date: 20051220
  Transmission Date: 20060701
  Serious: Yes (Death, Hospitalization)
  Sender: FDA-Public Use
  Company Number: BE-AVENTIS-200521222GDDC

PATIENT
  Age: 73 Year
  Sex: Female
  Weight: 58 kg

DRUGS (8)
  1. DOCETAXEL [Suspect]
     Indication: BREAST CANCER
     Route: 042
     Dates: start: 20051216, end: 20051216
  2. CAPECITABINE [Suspect]
     Indication: BREAST CANCER
     Route: 048
     Dates: start: 20051217, end: 20051217
  3. TRASTUZUMAB [Suspect]
     Indication: BREAST CANCER
     Route: 042
     Dates: start: 20051209, end: 20051209
  4. METHYLPREDNISOLONE [Suspect]
     Indication: BREAST CANCER
     Dosage: DOSE: 128MG ON DAYS 1+8 / 3 WEEK
     Dates: start: 20050916, end: 20051216
  5. LORMETAZEPAM [Concomitant]
  6. DAFLON [Concomitant]
  7. HEXTRIL [Concomitant]
  8. UNKNOWN DRUG [Concomitant]

REACTIONS (4)
  - BLOOD AMYLASE INCREASED [None]
  - DEATH [None]
  - GASTRIC PERFORATION [None]
  - LIPASE INCREASED [None]
